FAERS Safety Report 10679279 (Version 2)
Quarter: 2014Q4

REPORT INFORMATION
  Report Type: Spontaneous
  Country: NL (occurrence: NL)
  Receive Date: 20141229
  Receipt Date: 20141229
  Transmission Date: 20150529
  Serious: Yes (Death)
  Sender: FDA-Public Use
  Company Number: NL-BAXTER-2014BAX069191

PATIENT
  Sex: Male

DRUGS (6)
  1. EXTRANEAL [Suspect]
     Active Substance: CALCIUM CHLORIDE\ICODEXTRIN\MAGNESIUM CHLORIDE\SODIUM CHLORIDE\SODIUM LACTATE
     Indication: PERITONEAL DIALYSIS
  2. EXTRANEAL [Suspect]
     Active Substance: CALCIUM CHLORIDE\ICODEXTRIN\MAGNESIUM CHLORIDE\SODIUM CHLORIDE\SODIUM LACTATE
     Indication: CARDIAC FAILURE
     Route: 033
     Dates: end: 20141114
  3. PHYSIONEAL 40 GLUCOSE 1.36% W/V / 13.6 MG/ML CLEAR-FLEX, OPLOSSING VOO [Suspect]
     Active Substance: DEXTROSE\SODIUM BICARBONATE\SODIUM CHLORIDE\SODIUM LACTATE
     Indication: OFF LABEL USE
  4. PHYSIONEAL 40 GLUCOSE 1.36% W/V / 13.6 MG/ML CLEAR-FLEX, OPLOSSING VOO [Suspect]
     Active Substance: DEXTROSE\SODIUM BICARBONATE\SODIUM CHLORIDE\SODIUM LACTATE
     Indication: CARDIAC FAILURE
     Route: 033
     Dates: end: 20141114
  5. PHYSIONEAL 40 GLUCOSE 1.36% W/V / 13.6 MG/ML CLEAR-FLEX, OPLOSSING VOO [Suspect]
     Active Substance: DEXTROSE\SODIUM BICARBONATE\SODIUM CHLORIDE\SODIUM LACTATE
     Indication: PERITONEAL DIALYSIS
  6. EXTRANEAL [Suspect]
     Active Substance: CALCIUM CHLORIDE\ICODEXTRIN\MAGNESIUM CHLORIDE\SODIUM CHLORIDE\SODIUM LACTATE
     Indication: OFF LABEL USE

REACTIONS (1)
  - Cardiac failure [Fatal]
